FAERS Safety Report 24416534 (Version 1)
Quarter: 2024Q4

REPORT INFORMATION
  Report Type: Spontaneous
  Country: US (occurrence: US)
  Receive Date: 20241009
  Receipt Date: 20241009
  Transmission Date: 20250114
  Serious: No
  Sender: PAREXEL
  Company Number: US-NOVEN PHARMACEUTICALS, INC.-2024-NOV-US000791

PATIENT
  Age: 7 Year
  Sex: Female
  Weight: 27.211 kg

DRUGS (2)
  1. XELSTRYM [Suspect]
     Active Substance: DEXTROAMPHETAMINE
     Indication: Attention deficit hyperactivity disorder
     Dosage: 4.5 MG/9 HOURS
     Route: 062
     Dates: start: 20240627, end: 20240627
  2. MINOXIDIL [Concomitant]
     Active Substance: MINOXIDIL
     Indication: Loose anagen syndrome
     Dosage: UNKNOWN, UNK
     Route: 065

REACTIONS (3)
  - Application site pain [Recovered/Resolved]
  - Application site irritation [Recovered/Resolved]
  - Application site erythema [Recovered/Resolved]

NARRATIVE: CASE EVENT DATE: 20240627
